FAERS Safety Report 4588458-9 (Version None)
Quarter: 2005Q1

REPORT INFORMATION
  Report Type: 
  Country: None (occurrence: None)
  Receive Date: 20050216
  Receipt Date: 20050216
  Transmission Date: 20050727
  Serious: Yes (Other)
  Sender: FDA-Public Use
  Company Number: None

PATIENT
  Age: 61 Year
  Sex: Female
  Weight: 56.4 kg

DRUGS (1)
  1. VANCOMYCIN [Suspect]
     Indication: LYME DISEASE
     Dosage: 1 GM QD IV
     Route: 042
     Dates: start: 20041105, end: 20041130

REACTIONS (1)
  - EAR DISORDER [None]
